FAERS Safety Report 7336228-0 (Version None)
Quarter: 2011Q1

REPORT INFORMATION
  Report Type: 
  Country: None (occurrence: None)
  Receive Date: 20110307
  Receipt Date: 20110303
  Transmission Date: 20110831
  Serious: Yes (Other)
  Sender: FDA-Public Use
  Company Number: BR-PFIZER INC-2011031969

PATIENT
  Sex: Male

DRUGS (1)
  1. CELEBREX [Suspect]
     Dosage: UNK
     Route: 048
     Dates: start: 20110209

REACTIONS (2)
  - HYPERSENSITIVITY [None]
  - HICCUPS [None]
